FAERS Safety Report 22538070 (Version 1)
Quarter: 2023Q2

REPORT INFORMATION
  Report Type: Other
  Country: CA (occurrence: CA)
  Receive Date: 20230608
  Receipt Date: 20230608
  Transmission Date: 20230722
  Serious: Yes (Other)
  Sender: FDA-Public Use
  Company Number: CA-CELLTRION INC.-2023CA011639

PATIENT

DRUGS (1)
  1. RITUXIMAB [Suspect]
     Active Substance: RITUXIMAB
     Indication: Cold type haemolytic anaemia
     Route: 042

REACTIONS (8)
  - Aspiration [Unknown]
  - Mucosal disorder [Unknown]
  - Asthma [Unknown]
  - Cough [Unknown]
  - Diverticulitis [Unknown]
  - Dyspnoea [Unknown]
  - Urinary tract infection [Unknown]
  - Intentional product use issue [Unknown]
